FAERS Safety Report 23327207 (Version 1)
Quarter: 2023Q4

REPORT INFORMATION
  Report Type: Spontaneous
  Country: CN (occurrence: CN)
  Receive Date: 20231221
  Receipt Date: 20231221
  Transmission Date: 20240110
  Serious: Yes (Other)
  Sender: FDA-Public Use
  Company Number: None

PATIENT
  Age: 59 Year
  Sex: Female
  Weight: 50 kg

DRUGS (4)
  1. CYCLOPHOSPHAMIDE [Suspect]
     Active Substance: CYCLOPHOSPHAMIDE
     Indication: Breast cancer female
     Dosage: 0.95 G, ONE TIME IN ONE DAY, DILUTED WITH 0.9% SODIUM CHLORIDE (50 ML), AT 10:00 HR, (LYOPHILIZED PO
     Route: 041
     Dates: start: 20231122, end: 20231122
  2. SODIUM CHLORIDE [Suspect]
     Active Substance: SODIUM CHLORIDE
     Indication: Medication dilution
     Dosage: 50 ML, ONE TIME IN ONE DAY, USED TO DILUTE CYCLOPHOSPHAMIDE (0.95 G), DOSAGE FORM: INJECTION, STRENG
     Route: 041
     Dates: start: 20231122, end: 20231122
  3. SODIUM CHLORIDE [Suspect]
     Active Substance: SODIUM CHLORIDE
     Dosage: 250 ML, ONE TIME IN ONE DAY, USED TO DILUTE DOCETAXEL (110 MG), DOSAGE FORM: INJECTION, STRENGTH: 0.
     Route: 041
     Dates: start: 20231122, end: 20231122
  4. DOCETAXEL [Suspect]
     Active Substance: DOCETAXEL\DOCETAXEL ANHYDROUS
     Indication: Breast cancer female
     Dosage: 110 MG, ONE TIME IN ONE DAY, DILUTED WITH 0.9% SODIUM CHLORIDE (250 ML), AT 10:00 HR
     Route: 041
     Dates: start: 20231122, end: 20231122

REACTIONS (2)
  - Leukopenia [Recovered/Resolved]
  - Neutropenia [Unknown]

NARRATIVE: CASE EVENT DATE: 20231127
